FAERS Safety Report 23572634 (Version 2)
Quarter: 2024Q2

REPORT INFORMATION
  Report Type: Spontaneous
  Country: US (occurrence: US)
  Receive Date: 20240227
  Receipt Date: 20240528
  Transmission Date: 20240716
  Serious: No
  Sender: FDA-Public Use
  Company Number: US-AVADEL CNS PHARMACEUTICALS, LLC-2023AVA00523

PATIENT

DRUGS (1)
  1. LUMRYZ [Suspect]
     Active Substance: SODIUM OXYBATE
     Dosage: UNK

REACTIONS (5)
  - Hunger [Not Recovered/Not Resolved]
  - Therapeutic product effect prolonged [Unknown]
  - Sleep inertia [Unknown]
  - Abnormal dreams [Unknown]
  - Nocturia [Not Recovered/Not Resolved]
